FAERS Safety Report 6903231-1 (Version None)
Quarter: 2010Q3

REPORT INFORMATION
  Report Type: 
  Country: None (occurrence: None)
  Receive Date: 20100803
  Receipt Date: 20080906
  Transmission Date: 20110219
  Serious: No
  Sender: FDA-Public Use
  Company Number: US-PFIZER INC-2008062811

PATIENT
  Sex: Female
  Weight: 84.37 kg

DRUGS (6)
  1. LYRICA [Suspect]
     Indication: HYPOAESTHESIA
     Route: 048
     Dates: start: 20080610
  2. LYRICA [Suspect]
     Indication: PARAESTHESIA
  3. LYRICA [Suspect]
     Indication: BURNING SENSATION
  4. LYRICA [Suspect]
     Indication: NEUROPATHY PERIPHERAL
  5. LYRICA [Suspect]
     Indication: PAIN
  6. FENTANYL CITRATE [Concomitant]

REACTIONS (5)
  - COGNITIVE DISORDER [None]
  - DRUG INEFFECTIVE [None]
  - FATIGUE [None]
  - HUNGER [None]
  - JOINT SWELLING [None]
